FAERS Safety Report 24678983 (Version 1)
Quarter: 2024Q4

REPORT INFORMATION
  Report Type: Other
  Country: PS (occurrence: PS)
  Receive Date: 20241129
  Receipt Date: 20241129
  Transmission Date: 20250114
  Serious: Yes (Hospitalization, Other)
  Sender: BIONPHARMA INC.
  Company Number: PS-Bion-014372

PATIENT
  Age: 40 Year
  Sex: Female

DRUGS (2)
  1. DEXAMETHASONE [Suspect]
     Active Substance: DEXAMETHASONE
     Indication: Product used for unknown indication
     Dosage: MULTIPLE DEXAMETHASONE INJECTIONS OVER THE PAST FEW MONTHS
  2. PREDNISONE [Concomitant]
     Active Substance: PREDNISONE
     Indication: Product used for unknown indication
     Dosage: 40MG

REACTIONS (2)
  - Cushing^s syndrome [Recovering/Resolving]
  - Factitious disorder [Unknown]
